FAERS Safety Report 8179448-8 (Version None)
Quarter: 2012Q1

REPORT INFORMATION
  Report Type: 
  Country: None (occurrence: None)
  Receive Date: 20120302
  Receipt Date: 20120227
  Transmission Date: 20120608
  Serious: Yes (Death, Other)
  Sender: FDA-Public Use
  Company Number: CHPA2012US003756

PATIENT
  Age: 62 Year
  Sex: Female

DRUGS (7)
  1. BUPROPION HCL [Suspect]
     Route: 048
  2. TRAZODONE HCL [Suspect]
     Route: 048
  3. MUSCLE RELAXANTS [Suspect]
     Route: 048
  4. TEMAZEPAM [Suspect]
     Route: 048
  5. IMIPRAMINE [Suspect]
     Route: 048
  6. DIPHENHYDRAMINE HCL [Suspect]
     Route: 048
  7. LAXATIVES [Suspect]
     Route: 048

REACTIONS (2)
  - CARDIO-RESPIRATORY ARREST [None]
  - DEATH [None]
